FAERS Safety Report 13158483 (Version 4)
Quarter: 2019Q2

REPORT INFORMATION
  Report Type: Report from Study
  Country: None (occurrence: DE)
  Receive Date: 20170127
  Receipt Date: 20190617
  Transmission Date: 20190711
  Serious: Yes (Disabling, Other)
  Sender: FDA-Public Use
  Company Number: DE-BIOVITRUM-2012DE0435

PATIENT
  Age: 3 Year
  Sex: Male
  Weight: 19.5 kg

DRUGS (6)
  1. ORFADIN [Suspect]
     Active Substance: NITISINONE
     Dosage: 14 MG, BID, 1 MG/KG (WEIGHT 14 KG)
     Dates: start: 20140214, end: 20160523
  2. ORFADIN [Suspect]
     Active Substance: NITISINONE
     Dosage: 22 MG (TOTAL DAILY DOSE), BID
     Dates: start: 20170516, end: 20170516
  3. ORFADIN [Suspect]
     Active Substance: NITISINONE
     Dosage: 20 MG, BID, 1.33 MG/KG (WEIGHT 15 KG)
     Dates: start: 20160523, end: 20170505
  4. ORFADIN [Suspect]
     Active Substance: NITISINONE
     Dosage: 12 MG, BID, 1.5 MG/KG (WEIGHT 8 KG)
     Dates: start: 20121203, end: 20140213
  5. ORFADIN [Suspect]
     Active Substance: NITISINONE
     Indication: TYROSINAEMIA
     Dosage: 4 MG, BID, 1.03 MG/KG (WEIGHT 3.9 KG)
     Dates: start: 20111219, end: 20121202
  6. ORFADIN [Suspect]
     Active Substance: NITISINONE
     Dosage: 22 MG (TOTAL DAILY DOSE), BID
     Dates: end: 20190211

REACTIONS (6)
  - Succinylacetone increased [Unknown]
  - Drug level decreased [Recovered/Resolved]
  - Autism spectrum disorder [Not Recovered/Not Resolved]
  - Developmental delay [Not Recovered/Not Resolved]
  - Amino acid level decreased [Unknown]
  - Amino acid level increased [Recovered/Resolved]

NARRATIVE: CASE EVENT DATE: 20151207
